FAERS Safety Report 4882141-8 (Version None)
Quarter: 2006Q1

REPORT INFORMATION
  Report Type: 
  Country: None (occurrence: None)
  Receive Date: 20060112
  Receipt Date: 20060103
  Transmission Date: 20060701
  Serious: Yes (Life-Threatening, Hospitalization, Other)
  Sender: FDA-Public Use
  Company Number: 2006002317

PATIENT
  Age: 29 Year
  Sex: Male
  Weight: 70 kg

DRUGS (3)
  1. PREGABALIN (PREGABALIN) [Suspect]
     Indication: EPILEPSY
     Dosage: 150 MG (75 MG, 2 IN 1 D), ORAL
     Route: 048
     Dates: start: 20050701
  2. LAMOTRIGINE [Concomitant]
  3. LEVETIRACETAM [Concomitant]

REACTIONS (16)
  - ACUTE RESPIRATORY DISTRESS SYNDROME [None]
  - AGITATION [None]
  - ANXIETY [None]
  - ASPIRATION [None]
  - BLOOD PH DECREASED [None]
  - CONVULSION [None]
  - ECONOMIC PROBLEM [None]
  - GLASGOW COMA SCALE ABNORMAL [None]
  - INTENTIONAL SELF-INJURY [None]
  - MULTIPLE DRUG OVERDOSE INTENTIONAL [None]
  - PCO2 DECREASED [None]
  - PO2 DECREASED [None]
  - SINUS TACHYCARDIA [None]
  - STATUS EPILEPTICUS [None]
  - SUICIDE ATTEMPT [None]
  - WHITE BLOOD CELL COUNT INCREASED [None]
